FAERS Safety Report 9218029 (Version 2)
Quarter: 2013Q3

REPORT INFORMATION
  Report Type: Spontaneous
  Country: US (occurrence: US)
  Receive Date: 20130408
  Receipt Date: 20130722
  Transmission Date: 20140515
  Serious: Yes (Death, Life-Threatening, Other)
  Sender: FDA-Public Use
  Company Number: US-TARO-2013P1004313

PATIENT
  Age: 77 Year
  Sex: Female
  Weight: 83.9 kg

DRUGS (15)
  1. WARFARIN SODIUM TABLETS USP 2MG [Suspect]
     Indication: ATRIAL FIBRILLATION
     Route: 048
     Dates: end: 20130216
  2. WARFARIN SODIUM TABLETS USP 2MG [Suspect]
     Indication: ATRIAL FIBRILLATION
     Route: 048
     Dates: end: 20130216
  3. WARFARIN SODIUM TABLETS USP 2MG [Suspect]
     Indication: ATRIAL FIBRILLATION
     Route: 048
  4. VENTOLIN (ALBUTEROL) INHALER [Concomitant]
     Route: 055
  5. DIGOXIN [Concomitant]
     Route: 048
  6. LASIX [Concomitant]
     Route: 048
  7. LISINOPRIL [Concomitant]
     Route: 048
  8. SPIRIVA HANDINHALER [Concomitant]
     Route: 055
  9. DIPHENOXYLATE/ATROPINE 2.5MG/0.025MG [Concomitant]
     Route: 048
  10. VITAMIN D 400 UNIT CAPSULE [Concomitant]
     Route: 048
  11. VITAMIN D 400 UNIT CAPSULE [Concomitant]
     Route: 048
  12. URSODIOL (URSO FORTE) [Concomitant]
     Route: 048
  13. CENTRUM SILVER TABLET (MULTIVITAMIN) [Concomitant]
     Route: 048
  14. SYMBICORT INHALER 160 MCG/4.5MCG [Concomitant]
     Route: 055
  15. ZOCOR [Concomitant]

REACTIONS (12)
  - International normalised ratio increased [Unknown]
  - Haemorrhage [Unknown]
  - Epistaxis [Not Recovered/Not Resolved]
  - Haemothorax [Not Recovered/Not Resolved]
  - Product quality issue [Unknown]
  - Bradycardia [Fatal]
  - Hyperkalaemia [Fatal]
  - Anxiety [Unknown]
  - Chronic obstructive pulmonary disease [Fatal]
  - Cardiac murmur [Fatal]
  - Cardiac arrest [Unknown]
  - Prothrombin time prolonged [Unknown]
